FAERS Safety Report 9607652 (Version 3)
Quarter: 2013Q4

REPORT INFORMATION
  Report Type: Spontaneous
  Country: US (occurrence: US)
  Receive Date: 20131009
  Receipt Date: 20131121
  Transmission Date: 20140711
  Serious: Yes (Life-Threatening, Other)
  Sender: FDA-Public Use
  Company Number: US-JNJFOC-20131004048

PATIENT
  Age: 56 Year
  Sex: Male
  Weight: 86.18 kg

DRUGS (4)
  1. ECONAZOLE NITRATE [Suspect]
     Indication: FUNGAL INFECTION
     Route: 061
     Dates: start: 20121218, end: 20121227
  2. WARFARIN SODIUM [Interacting]
     Indication: MITRAL VALVE REPLACEMENT
     Dosage: 7.5MG-1 1/2 DAILY
     Route: 048
     Dates: start: 20070612, end: 20121231
  3. CARVEDILOL [Concomitant]
     Indication: PRODUCT USED FOR UNKNOWN INDICATION
     Route: 065
  4. DILTIAZEM HYDROCHLORIDE [Concomitant]
     Indication: PRODUCT USED FOR UNKNOWN INDICATION
     Route: 065

REACTIONS (3)
  - Blood urine present [Recovered/Resolved]
  - International normalised ratio increased [Recovered/Resolved]
  - Drug interaction [Recovered/Resolved]
